FAERS Safety Report 17682207 (Version 2)
Quarter: 2020Q3

REPORT INFORMATION
  Report Type: Spontaneous
  Country: ES (occurrence: ES)
  Receive Date: 20200418
  Receipt Date: 20200929
  Transmission Date: 20201102
  Serious: Yes (Hospitalization, Other)
  Sender: FDA-Public Use
  Company Number: ES-AUROBINDO-AUR-APL-2020-018538

PATIENT
  Age: 63 Year
  Sex: Female

DRUGS (3)
  1. ATENOLOL. [Suspect]
     Active Substance: ATENOLOL
     Indication: PRODUCT USED FOR UNKNOWN INDICATION
     Dosage: 50 MILLIGRAM, ONCE A DAY
     Route: 048
     Dates: start: 20181004, end: 20190311
  2. METAMIZOL [Suspect]
     Active Substance: METAMIZOLE SODIUM
     Indication: PAIN
     Dosage: UNK UNK, 3 TIMES A DAY (1?1?1 )
     Route: 065
     Dates: start: 20190305, end: 20190311
  3. IBUPROFEN. [Suspect]
     Active Substance: IBUPROFEN
     Indication: PRODUCT USED FOR UNKNOWN INDICATION
     Dosage: 600 MILLIGRAM, ON DEMAND
     Route: 048
     Dates: start: 20181018, end: 20190311

REACTIONS (4)
  - Duodenal ulcer [Recovered/Resolved]
  - Acute kidney injury [Recovered/Resolved]
  - Vomiting [Recovered/Resolved]
  - Hyperkalaemia [Recovered/Resolved]

NARRATIVE: CASE EVENT DATE: 20190311
